FAERS Safety Report 14658631 (Version 1)
Quarter: 2018Q1

REPORT INFORMATION
  Report Type: Spontaneous
  Country: US (occurrence: US)
  Receive Date: 20180320
  Receipt Date: 20180320
  Transmission Date: 20180509
  Serious: No
  Sender: FDA-Public Use
  Company Number: US-JNJFOC-20180301345

PATIENT
  Age: 64 Year
  Sex: Female
  Weight: 100.7 kg

DRUGS (1)
  1. TYLENOL EXTRA STRENGTH [Suspect]
     Active Substance: ACETAMINOPHEN
     Indication: ARTHRALGIA
     Dosage: TOOK OCCASIONALLY FOR THE LAST 2 MONTHS
     Route: 065
     Dates: end: 20180228

REACTIONS (1)
  - Drug ineffective [Unknown]
